FAERS Safety Report 11074784 (Version 1)
Quarter: 2015Q2

REPORT INFORMATION
  Report Type: Spontaneous
  Country: FR (occurrence: FR)
  Receive Date: 20150429
  Receipt Date: 20150429
  Transmission Date: 20150821
  Serious: Yes (Hospitalization, Other)
  Sender: FDA-Public Use
  Company Number: FR-TEVA-556549ISR

PATIENT
  Age: 79 Year
  Sex: Female

DRUGS (10)
  1. LASILIX 40 MG [Concomitant]
     Active Substance: FUROSEMIDE
     Dosage: .5 DOSAGE FORMS DAILY;
     Route: 048
     Dates: start: 201410
  2. AZILECT [Interacting]
     Active Substance: RASAGILINE MESYLATE
     Dosage: 1 DOSAGE FORMS DAILY; IN THE MORNING
     Route: 048
     Dates: end: 20141015
  3. DOMPERIDONE 10 MG [Concomitant]
     Dosage: 3 DOSAGE FORMS DAILY; 1 TABLET 3 TIMES PER DAY
     Route: 048
     Dates: end: 20141015
  4. SERESTA 10 MG [Concomitant]
     Dosage: 1 DOSAGE FORMS DAILY; BACKGROUND TREATMENT, 1 TABLET IN THE EVENING
     Route: 048
     Dates: end: 20141015
  5. CALCIPARINE 7 500 UI/0,3 ML [Concomitant]
     Dosage: 1 INJECTION IN THE MORNING AND 1 INJECTION IN THE EVENING
     Route: 058
     Dates: start: 20140927
  6. MODOPAR 100/25 MG [Interacting]
     Active Substance: BENSERAZIDE HYDROCHLORIDE\LEVODOPA
     Dosage: 3 DOSAGE FORMS DAILY; 1 TABLET AT 07:00 A.M, 01:00 P.M AND 07:00 P.M
     Route: 048
  7. PANTOPRAZOLE SODIUM. [Concomitant]
     Active Substance: PANTOPRAZOLE SODIUM
     Dosage: 1 DOSAGE FORMS DAILY; BACKGROUND TREATMENT, 1 TABLET IN THE EVENING
     Route: 048
  8. SIFROL 1.5 MG LP [Interacting]
     Active Substance: PRAMIPEXOLE
     Dosage: 1 DOSAGE FORMS DAILY;
     Route: 048
     Dates: end: 20141015
  9. MODOPAR 200/50 MG [Suspect]
     Active Substance: BENSERAZIDE HYDROCHLORIDE\LEVODOPA
     Dosage: 3 DOSAGE FORMS DAILY; 1 TABLET AT 07:00 A.M, 01:00 P.M AND 07:00 P.M
     Route: 048
  10. LAMALINE [Concomitant]
     Active Substance: ACETAMINOPHEN\CAFFEINE\OPIUM
     Dosage: BACKGROUND TREATMENT
     Route: 048
     Dates: end: 20141015

REACTIONS (3)
  - Hallucination, visual [Recovered/Resolved]
  - Drug interaction [Unknown]
  - Acute kidney injury [Unknown]

NARRATIVE: CASE EVENT DATE: 201410
